FAERS Safety Report 20439815 (Version 8)
Quarter: 2022Q4

REPORT INFORMATION
  Report Type: Report from Study
  Country: JP (occurrence: JP)
  Receive Date: 20220207
  Receipt Date: 20221116
  Transmission Date: 20230112
  Serious: Yes (Hospitalization)
  Sender: FDA-Public Use
  Company Number: JP-DSJP-DSJ-2021-137528

PATIENT
  Age: 70 Year
  Sex: Male
  Weight: 47.8 kg

DRUGS (6)
  1. ENHERTU [Suspect]
     Active Substance: FAM-TRASTUZUMAB DERUXTECAN-NXKI
     Indication: HER2 positive gastric cancer
     Dosage: 6.4 MG/KG, ONCE EVERY 3 WK
     Route: 041
     Dates: start: 20211108, end: 20211108
  2. ENHERTU [Suspect]
     Active Substance: FAM-TRASTUZUMAB DERUXTECAN-NXKI
     Dosage: 6.4 MG/KG, ONCE EVERY 3 WK
     Route: 041
     Dates: start: 20211129, end: 20211129
  3. ENHERTU [Suspect]
     Active Substance: FAM-TRASTUZUMAB DERUXTECAN-NXKI
     Dosage: 6.4 MG/KG, ONCE EVERY 3 WK
     Route: 041
     Dates: start: 20211220, end: 20211220
  4. ALOXI [Concomitant]
     Active Substance: PALONOSETRON HYDROCHLORIDE
     Dosage: UNK
     Route: 065
  5. DECADRON (DEXAMETHASONE SODIUM PHOSPHATE) [Concomitant]
     Active Substance: DEXAMETHASONE SODIUM PHOSPHATE
     Dosage: 6.6MG/DAY
     Route: 065
     Dates: start: 20211108
  6. HERBALS [Concomitant]
     Active Substance: HERBALS
     Dosage: UNK, AS NEEDED
     Route: 048

REACTIONS (6)
  - Organising pneumonia [Recovered/Resolved]
  - Pneumonia aspiration [Unknown]
  - Thirst [Recovered/Resolved]
  - Malaise [Recovering/Resolving]
  - Neutrophil count decreased [Recovered/Resolved]
  - Thirst [Recovered/Resolved]

NARRATIVE: CASE EVENT DATE: 20211109
